FAERS Safety Report 4323802-9 (Version None)
Quarter: 2004Q1

REPORT INFORMATION
  Report Type: 
  Country: None (occurrence: None)
  Receive Date: 20040326
  Receipt Date: 20040225
  Transmission Date: 20041129
  Serious: Yes (Other)
  Sender: FDA-Public Use
  Company Number: US-BRISTOL-MYERS SQUIBB COMPANY-12517470

PATIENT
  Age: 66 Year
  Sex: Female

DRUGS (4)
  1. ABILIFY [Interacting]
     Indication: BIPOLAR DISORDER
     Route: 048
     Dates: start: 20040101
  2. LITHIUM [Interacting]
     Dosage: TAKEN FOR SEVERAL YEARS
  3. OLANZAPINE [Suspect]
  4. LAMICTAL [Concomitant]
     Dosage: TAKEN FOR SEVERAL YEARS

REACTIONS (2)
  - DRUG INTERACTION [None]
  - FACE OEDEMA [None]
